FAERS Safety Report 5912250-3 (Version None)
Quarter: 2008Q4

REPORT INFORMATION
  Report Type: 
  Country: None (occurrence: None)
  Receive Date: 20081008
  Receipt Date: 20081001
  Transmission Date: 20090506
  Serious: Yes (Congenital Anomaly)
  Sender: FDA-Public Use
  Company Number: B0495035A

PATIENT

DRUGS (2)
  1. PAROXETINE HCL [Suspect]
     Indication: DEPRESSION
     Dates: start: 20061101, end: 20070322
  2. AMITRIPTYLINE HCL [Suspect]
     Indication: DEPRESSION

REACTIONS (2)
  - DYSMORPHISM [None]
  - POLYDACTYLY [None]
